FAERS Safety Report 22004545 (Version 1)
Quarter: 2023Q1

REPORT INFORMATION
  Report Type: Spontaneous
  Country: US (occurrence: None)
  Receive Date: 20230213
  Receipt Date: 20230213
  Transmission Date: 20230417
  Serious: Yes (Hospitalization)
  Sender: FDA-Public Use
  Company Number: None

PATIENT
  Age: 72 Year
  Sex: Male

DRUGS (1)
  1. ROMIDEPSIN [Suspect]
     Active Substance: ROMIDEPSIN
     Indication: T-cell lymphoma
     Dates: start: 20221228, end: 20230208

REACTIONS (10)
  - Mental status changes [None]
  - Nausea [None]
  - Fatigue [None]
  - Hypophagia [None]
  - Abdominal pain [None]
  - Asthenia [None]
  - Failure to thrive [None]
  - Therapy interrupted [None]
  - Infection [None]
  - Gait inability [None]

NARRATIVE: CASE EVENT DATE: 20230208
